FAERS Safety Report 8645370 (Version 3)
Quarter: 2013Q1

REPORT INFORMATION
  Report Type: Report from Study
  Country: AU (occurrence: AU)
  Receive Date: 20120702
  Receipt Date: 20130128
  Transmission Date: 20140127
  Serious: Yes (Hospitalization)
  Sender: FDA-Public Use
  Company Number: AU-JNJFOC-20120517290

PATIENT
  Age: 85 Year
  Sex: Male
  Weight: 66.9 kg

DRUGS (8)
  1. ABIRATERONE ACETATE [Suspect]
     Route: 048
  2. ABIRATERONE ACETATE [Suspect]
     Indication: PROSTATE CANCER METASTATIC
     Route: 048
     Dates: start: 20110914, end: 20120509
  3. PREDNISOLONE [Suspect]
     Indication: PROSTATE CANCER METASTATIC
     Route: 048
     Dates: start: 20110914, end: 20120509
  4. CLARATYNE [Concomitant]
     Indication: SEASONAL ALLERGY
     Route: 065
     Dates: start: 2009
  5. PANADOL [Concomitant]
     Indication: OSTEOARTHRITIS
     Route: 065
     Dates: start: 2010
  6. SOMAC [Concomitant]
     Indication: HIATUS HERNIA
     Route: 065
     Dates: start: 2000
  7. ARISTOCORT A [Concomitant]
     Indication: CELLULITIS
     Route: 065
     Dates: start: 20110817, end: 20120520
  8. ZOMETA [Concomitant]
     Indication: METASTASES TO BONE
     Route: 065
     Dates: start: 20110427, end: 20120508

REACTIONS (1)
  - Cellulitis [Recovered/Resolved with Sequelae]
